FAERS Safety Report 11777690 (Version 3)
Quarter: 2016Q1

REPORT INFORMATION
  Report Type: Spontaneous
  Country: US (occurrence: US)
  Receive Date: 20151125
  Receipt Date: 20160218
  Transmission Date: 20160525
  Serious: Yes (Hospitalization, Other)
  Sender: FDA-Public Use
  Company Number: US-BAYER-2015-475540

PATIENT
  Age: 23 Year
  Sex: Female
  Weight: 83.9 kg

DRUGS (6)
  1. DEPO-PROVERA [Concomitant]
     Active Substance: MEDROXYPROGESTERONE ACETATE
     Dosage: 150 MG, UNK
  2. MIRENA [Suspect]
     Active Substance: LEVONORGESTREL
     Indication: CONTRACEPTION
     Dosage: 20 MCG/24HR, CONT
     Route: 015
     Dates: start: 20050621, end: 20150715
  3. PRENATAL VITAMINS [Concomitant]
     Active Substance: VITAMINS
  4. BACTRIM DS [Concomitant]
     Active Substance: SULFAMETHOXAZOLE\TRIMETHOPRIM
  5. LINZESS [Concomitant]
     Active Substance: LINACLOTIDE
     Dosage: 145MCG
  6. DIFLUCAN [Concomitant]
     Active Substance: FLUCONAZOLE
     Dosage: 150 MG, UNK

REACTIONS (9)
  - Device use error [None]
  - Urinary tract infection [Not Recovered/Not Resolved]
  - Anxiety [None]
  - Device dislocation [Not Recovered/Not Resolved]
  - Device issue [None]
  - Pregnancy with contraceptive device [None]
  - Dysuria [Not Recovered/Not Resolved]
  - Drug ineffective [None]
  - Pain [Not Recovered/Not Resolved]

NARRATIVE: CASE EVENT DATE: 2005
